FAERS Safety Report 20092513 (Version 7)
Quarter: 2022Q4

REPORT INFORMATION
  Report Type: Spontaneous
  Country: CA (occurrence: CA)
  Receive Date: 20211119
  Receipt Date: 20221217
  Transmission Date: 20230112
  Serious: Yes (Other)
  Sender: FDA-Public Use
  Company Number: CA-CELLTRION INC.-2021CA005403

PATIENT

DRUGS (13)
  1. INFLECTRA [Suspect]
     Active Substance: INFLIXIMAB-DYYB
     Indication: Crohn^s disease
     Dosage: 10 MG/KG, AT 0, 2, 6, THEN EVERY 8 WEEKS
     Route: 041
     Dates: start: 20210416, end: 20210416
  2. INFLECTRA [Suspect]
     Active Substance: INFLIXIMAB-DYYB
     Dosage: 10 MG/KG, AT 0, 2, 6, THEN EVERY 8 WEEKS
     Route: 041
     Dates: start: 20210528, end: 20210528
  3. INFLECTRA [Suspect]
     Active Substance: INFLIXIMAB-DYYB
     Dosage: 10 MG/KG, AT 0, 2, 6, THEN EVERY 8 WEEKS
     Route: 041
     Dates: start: 20210719, end: 20210719
  4. INFLECTRA [Suspect]
     Active Substance: INFLIXIMAB-DYYB
     Dosage: 10 MG/KG, AT 0, 2, 6, THEN EVERY 8 WEEKS
     Route: 041
     Dates: start: 20210915, end: 20210915
  5. INFLECTRA [Suspect]
     Active Substance: INFLIXIMAB-DYYB
     Dosage: 10 MG/KG, AT 0, 2, 6, THEN EVERY 8 WEEKS
     Route: 041
     Dates: start: 20211111, end: 20211111
  6. INFLECTRA [Suspect]
     Active Substance: INFLIXIMAB-DYYB
     Dosage: 10 MG/KG, AT 0, 2, 6, THEN EVERY 8 WEEKS
     Route: 041
     Dates: start: 20220104, end: 20220104
  7. INFLECTRA [Suspect]
     Active Substance: INFLIXIMAB-DYYB
     Dosage: 10 MG/KG, AT 0, 2, 6, THEN EVERY 8 WEEKS
     Route: 041
     Dates: start: 20220303
  8. INFLECTRA [Suspect]
     Active Substance: INFLIXIMAB-DYYB
     Dosage: 10 MG/KG, AT 0, 2, 6, THEN EVERY 8 WEEKS
     Route: 041
     Dates: start: 20220818
  9. INFLECTRA [Suspect]
     Active Substance: INFLIXIMAB-DYYB
     Dosage: 10 MG/KG, AT 0, 2, 6, THEN EVERY 8 WEEKS
     Route: 041
     Dates: start: 20221013
  10. INFLECTRA [Suspect]
     Active Substance: INFLIXIMAB-DYYB
     Dosage: 10 MG/KG, AT 0, 2, 6, THEN EVERY 8 WEEKS
     Route: 041
     Dates: start: 20221207
  11. PREDNISONE [Concomitant]
     Active Substance: PREDNISONE
     Dosage: UNK
  12. SYNTHROID [Concomitant]
     Active Substance: LEVOTHYROXINE SODIUM
     Dosage: 1 DF DOSAGE INFORMATION NOT AVAILABLE
     Route: 065
  13. IRON [Concomitant]
     Active Substance: IRON
     Dosage: UNK (SHOTS)
     Dates: start: 202202, end: 202202

REACTIONS (6)
  - Condition aggravated [Recovering/Resolving]
  - Blood pressure systolic increased [Unknown]
  - Heart rate decreased [Unknown]
  - Arthralgia [Unknown]
  - Fistula [Unknown]
  - Off label use [Unknown]

NARRATIVE: CASE EVENT DATE: 20210416
